FAERS Safety Report 16124377 (Version 1)
Quarter: 2019Q1

REPORT INFORMATION
  Report Type: Report from Study
  Country: DE (occurrence: DE)
  Receive Date: 20190327
  Receipt Date: 20190327
  Transmission Date: 20190418
  Serious: Yes (Hospitalization)
  Sender: FDA-Public Use
  Company Number: DE-SA-2019SA025564

PATIENT
  Age: 35 Year
  Sex: Female
  Weight: 91.6 kg

DRUGS (6)
  1. AFLIBERCEPT [Suspect]
     Active Substance: AFLIBERCEPT
     Dosage: 4 MG/KG, QCY
     Route: 042
     Dates: start: 20180625, end: 20180625
  2. RINGER [CALCIUM CHLORIDE DIHYDRATE;MAGNESIUM CHLORIDE;POTASSIUM CHLORI [Concomitant]
     Dosage: 1500 ML
     Route: 042
     Dates: start: 20190124
  3. AFLIBERCEPT [Suspect]
     Active Substance: AFLIBERCEPT
     Indication: COLORECTAL CANCER METASTATIC
     Dosage: 392.8 MG, QCY
     Route: 042
     Dates: start: 20181114, end: 20181114
  4. 5-FU [FLUOROURACIL] [Concomitant]
     Active Substance: FLUOROURACIL
     Indication: COLORECTAL CANCER METASTATIC
     Dosage: UNK UNK, QCY
     Route: 042
  5. IRINOTECAN [Concomitant]
     Active Substance: IRINOTECAN
     Indication: COLORECTAL CANCER METASTATIC
     Dosage: UNK UNK, QCY
     Route: 042
  6. LEUCOVORIN [FOLINIC ACID] [Concomitant]
     Active Substance: LEUCOVORIN
     Indication: COLORECTAL CANCER METASTATIC
     Dosage: UNK UNK, QCY
     Route: 042

REACTIONS (4)
  - Nausea [Recovered/Resolved]
  - Skin abrasion [Recovered/Resolved]
  - Ileus [Unknown]
  - Hypothyroidism [Recovered/Resolved]

NARRATIVE: CASE EVENT DATE: 20181127
